FAERS Safety Report 23539907 (Version 1)
Quarter: 2024Q1

REPORT INFORMATION
  Report Type: Spontaneous
  Country: US (occurrence: US)
  Receive Date: 20240219
  Receipt Date: 20240219
  Transmission Date: 20240410
  Serious: No
  Sender: FDA-Public Use
  Company Number: US-AMGEN-USASP2024029586

PATIENT

DRUGS (2)
  1. MVASI [Suspect]
     Active Substance: BEVACIZUMAB-AWWB
     Indication: Product used for unknown indication
     Dosage: 550 MILLIGRAM (X1 100MG VIALS AND X1 400MG VIALS)
     Route: 065
  2. MVASI [Suspect]
     Active Substance: BEVACIZUMAB-AWWB
     Dosage: 550 MILLIGRAM (X1 100MG VIALS AND X1 400MG VIALS)
     Route: 065

REACTIONS (1)
  - Ill-defined disorder [Unknown]
